FAERS Safety Report 8425266-2 (Version None)
Quarter: 2012Q2

REPORT INFORMATION
  Report Type: 
  Country: None (occurrence: None)
  Receive Date: 20120605
  Receipt Date: 20120605
  Transmission Date: 20120825
  Serious: Yes (Hospitalization, Disabling, Other)
  Sender: FDA-Public Use
  Company Number: None

PATIENT
  Sex: Female
  Weight: 46.7205 kg

DRUGS (1)
  1. RISPERDAL [Suspect]
     Indication: BIPOLAR DISORDER
     Dosage: 3 MG. 1 DAILY

REACTIONS (11)
  - AMNESIA [None]
  - FAILED EXAMINATIONS [None]
  - EATING DISORDER [None]
  - EDUCATIONAL PROBLEM [None]
  - HYPOTHALAMO-PITUITARY DISORDER [None]
  - INFLAMMATION [None]
  - EYE DISORDER [None]
  - PAIN [None]
  - SOCIAL PROBLEM [None]
  - EMOTIONAL DISORDER [None]
  - BRAIN NEOPLASM [None]
